FAERS Safety Report 6546156-6 (Version None)
Quarter: 2010Q1

REPORT INFORMATION
  Report Type: 
  Country: None (occurrence: None)
  Receive Date: 20100122
  Receipt Date: 20100112
  Transmission Date: 20100710
  Serious: Yes (Other)
  Sender: FDA-Public Use
  Company Number: GB-RANBAXY-2009RR-24609

PATIENT
  Age: 27 Year
  Sex: Female

DRUGS (3)
  1. FLUOXETINE [Suspect]
     Indication: DEPRESSION
     Dosage: 20 MG, UNK
     Dates: start: 20080724
  2. ZYPREXA [Suspect]
     Indication: DEPRESSION
     Dosage: 2.5 MG, UNK
     Dates: start: 20080623, end: 20080720
  3. VENLAFAXINE [Concomitant]
     Indication: DEPRESSION
     Dosage: 150 MG, UNK
     Dates: start: 20080623

REACTIONS (2)
  - ABORTION SPONTANEOUS [None]
  - DRUG EXPOSURE DURING PREGNANCY [None]
